FAERS Safety Report 17239615 (Version 3)
Quarter: 2020Q1

REPORT INFORMATION
  Report Type: Report from Study
  Country: None (occurrence: FR)
  Receive Date: 20200106
  Receipt Date: 20200123
  Transmission Date: 20200409
  Serious: Yes (Hospitalization, Other)
  Sender: FDA-Public Use
  Company Number: FR-ABBVIE-19P-056-3214584-00

PATIENT
  Age: 4 Year
  Sex: Female
  Weight: 19.1 kg

DRUGS (7)
  1. ALLOPURINOL. [Concomitant]
     Active Substance: ALLOPURINOL
     Indication: PROPHYLAXIS
     Dates: start: 20191202, end: 20191206
  2. VENETOCLAX. [Suspect]
     Active Substance: VENETOCLAX
     Indication: RECURRENT CANCER
     Route: 050
     Dates: start: 20191204, end: 20191204
  3. VENETOCLAX. [Suspect]
     Active Substance: VENETOCLAX
     Route: 050
     Dates: start: 20191206, end: 20191227
  4. VENETOCLAX. [Suspect]
     Active Substance: VENETOCLAX
     Indication: REFRACTORY CANCER
     Route: 050
     Dates: start: 20191205, end: 20191205
  5. CYTARABINE. [Concomitant]
     Active Substance: CYTARABINE
     Indication: REFRACTORY CANCER
     Route: 042
     Dates: start: 20191207, end: 20191211
  6. VENETOCLAX. [Suspect]
     Active Substance: VENETOCLAX
     Route: 050
     Dates: start: 20191229
  7. CYTARABINE. [Concomitant]
     Active Substance: CYTARABINE
     Indication: RECURRENT CANCER

REACTIONS (2)
  - Aspergillus infection [Not Recovered/Not Resolved]
  - Sepsis [Not Recovered/Not Resolved]

NARRATIVE: CASE EVENT DATE: 20191228
